FAERS Safety Report 5903193-X (Version None)
Quarter: 2008Q3

REPORT INFORMATION
  Report Type: 
  Country: None (occurrence: None)
  Receive Date: 20080926
  Receipt Date: 20080911
  Transmission Date: 20090109
  Serious: Yes (Hospitalization, Disabling)
  Sender: FDA-Public Use
  Company Number: DSA_32195_2008

PATIENT
  Age: 84 Year
  Sex: Female

DRUGS (6)
  1. MASDIL (MASDIL - DILTIAZEM HYDROCHLORIDE (SLOW RELEASE)) (NOT SPECIFIE [Suspect]
     Indication: DRUG USE FOR UNKNOWN INDICATION
     Dosage: (120 MG QD ORAL)
     Route: 048
     Dates: start: 20040526
  2. DAONIL (DAONIL - GLIBENCLAMIDE) 5 MG (NOT SPECIFIED) [Suspect]
     Indication: DIABETES MELLITUS
     Dosage: (5 MG FREQUENCY UNKNOWN ORAL)
     Route: 048
  3. ADIRO (UNKNOWN) [Concomitant]
  4. CO-DIOVAN (UNKNOWN) [Concomitant]
  5. DIASTABOL (UNKNOWN) [Concomitant]
  6. ESTOMIL (UNKNOWN) [Concomitant]

REACTIONS (2)
  - ATRIOVENTRICULAR BLOCK COMPLETE [None]
  - DRUG INTERACTION [None]
